FAERS Safety Report 18875572 (Version 1)
Quarter: 2021Q1

REPORT INFORMATION
  Report Type: Spontaneous
  Country: CN (occurrence: CN)
  Receive Date: 20210210
  Receipt Date: 20210210
  Transmission Date: 20210420
  Serious: Yes (Other)
  Sender: FDA-Public Use
  Company Number: CN-PFIZER INC-2021093598

PATIENT
  Age: 54 Year
  Sex: Female
  Weight: 68 kg

DRUGS (3)
  1. IMIPENEM AND CILASTATIN [Concomitant]
     Active Substance: CILASTATIN SODIUM\IMIPENEM
     Dosage: 0.5 G, 3X/DAY (Q8H)
  2. ZYVOX [Suspect]
     Active Substance: LINEZOLID
     Indication: ANTI-INFECTIVE THERAPY
     Dosage: 600 MG, 2X/DAY (Q12H)
     Dates: start: 202101, end: 202101
  3. ZYVOX [Suspect]
     Active Substance: LINEZOLID
     Dosage: 600 MG, 3X/DAY (Q8H)
     Route: 041
     Dates: start: 20210117, end: 20210119

REACTIONS (4)
  - Nausea [Recovered/Resolved]
  - Off label use [Unknown]
  - Vomiting [Recovered/Resolved]
  - Staphylococcal infection [Unknown]

NARRATIVE: CASE EVENT DATE: 20210116
